FAERS Safety Report 16589771 (Version 1)
Quarter: 2019Q3

REPORT INFORMATION
  Report Type: Spontaneous
  Country: US (occurrence: US)
  Receive Date: 20190717
  Receipt Date: 20190717
  Transmission Date: 20191004
  Serious: No
  Sender: FDA-Public Use
  Company Number: None

PATIENT
  Age: 68 Year
  Sex: Female
  Weight: 81 kg

DRUGS (6)
  1. DISULFIRAM TABLETS USP NDC 47781-607-30 [Suspect]
     Active Substance: DISULFIRAM
     Indication: ALCOHOLISM
     Dosage: ?          QUANTITY:2 TABLET(S);?
     Route: 048
     Dates: start: 20190607, end: 20190707
  2. COMPLETE MULTIVITAMIN WOMEN 50 + [Concomitant]
  3. BUSPPIRONE HCL [Concomitant]
  4. ESCITALOPRAM OXALATE. [Concomitant]
     Active Substance: ESCITALOPRAM OXALATE
  5. METROLOL [Concomitant]
     Active Substance: METOPROLOL
  6. ADULT LOW DOSE ASPIRIN [Concomitant]
     Active Substance: ASPIRIN

REACTIONS (7)
  - Diarrhoea [None]
  - Clumsiness [None]
  - Dizziness [None]
  - Memory impairment [None]
  - Abdominal pain [None]
  - Asthenia [None]
  - Confusional state [None]

NARRATIVE: CASE EVENT DATE: 20190711
